FAERS Safety Report 15939843 (Version 3)
Quarter: 2019Q1

REPORT INFORMATION
  Report Type: Spontaneous
  Country: US (occurrence: US)
  Receive Date: 20190208
  Receipt Date: 20190226
  Transmission Date: 20190417
  Serious: Yes (Other)
  Sender: FDA-Public Use
  Company Number: US-ASTRAZENECA-2018SF22119

PATIENT
  Age: 24133 Day
  Sex: Female
  Weight: 78 kg

DRUGS (41)
  1. METOPROLOL SUCCINATE. [Concomitant]
     Active Substance: METOPROLOL SUCCINATE
  2. PENICILLIN VK [Concomitant]
     Active Substance: PENICILLIN V POTASSIUM
  3. FLUCONAZOLE. [Concomitant]
     Active Substance: FLUCONAZOLE
  4. HUMALOG [Concomitant]
     Active Substance: INSULIN LISPRO
  5. BUSPIRONE [Concomitant]
     Active Substance: BUSPIRONE HYDROCHLORIDE
  6. KLOR-CON [Concomitant]
     Active Substance: POTASSIUM CHLORIDE
  7. COREG [Concomitant]
     Active Substance: CARVEDILOL
  8. COLCRYS [Concomitant]
     Active Substance: COLCHICINE
  9. HYDRALAZINE [Concomitant]
     Active Substance: HYDRALAZINE HYDROCHLORIDE
  10. AMOXICILLIN. [Concomitant]
     Active Substance: AMOXICILLIN
  11. PANTOPRAZOLE SODIUM. [Concomitant]
     Active Substance: PANTOPRAZOLE SODIUM
  12. DIGOXIN. [Concomitant]
     Active Substance: DIGOXIN
  13. CEPHALEXIN. [Concomitant]
     Active Substance: CEPHALEXIN
  14. HUMULIN NOS [Concomitant]
     Active Substance: INSULIN HUMAN
  15. PROPO-N/APAP [Concomitant]
  16. ALPRAZOLAM. [Concomitant]
     Active Substance: ALPRAZOLAM
  17. ALLOPURINOL. [Concomitant]
     Active Substance: ALLOPURINOL
  18. ISOSORBIDE DINITRATE. [Concomitant]
     Active Substance: ISOSORBIDE DINITRATE
  19. METOCLOPRAMIDE. [Concomitant]
     Active Substance: METOCLOPRAMIDE
  20. VICODIN [Concomitant]
     Active Substance: ACETAMINOPHEN\HYDROCODONE BITARTRATE
  21. ATORVASTATIN [Concomitant]
     Active Substance: ATORVASTATIN
  22. BUTRANS [Concomitant]
     Active Substance: BUPRENORPHINE
  23. MILRINONE [Concomitant]
     Active Substance: MILRINONE
  24. MOTRIN [Concomitant]
     Active Substance: IBUPROFEN
  25. NEXIUM [Suspect]
     Active Substance: ESOMEPRAZOLE MAGNESIUM
     Route: 048
     Dates: start: 20050101, end: 20161231
  26. NEXIUM 24HR [Suspect]
     Active Substance: ESOMEPRAZOLE MAGNESIUM
     Route: 048
     Dates: start: 200703, end: 201406
  27. AMIODARONE [Concomitant]
     Active Substance: AMIODARONE
  28. PROMETHAZINE [Concomitant]
     Active Substance: PROMETHAZINE\PROMETHAZINE HYDROCHLORIDE
  29. FUROSEMIDE. [Concomitant]
     Active Substance: FUROSEMIDE
  30. LETROZOLE. [Concomitant]
     Active Substance: LETROZOLE
  31. IVABRADINE [Concomitant]
     Active Substance: IVABRADINE
  32. ALENDRONATE [Concomitant]
     Active Substance: ALENDRONATE SODIUM
  33. NEXIUM [Suspect]
     Active Substance: ESOMEPRAZOLE MAGNESIUM
     Route: 048
     Dates: start: 200703, end: 201406
  34. NEXIUM [Suspect]
     Active Substance: ESOMEPRAZOLE MAGNESIUM
     Route: 048
     Dates: start: 20130304
  35. CYCLOBENZAPRINE. [Concomitant]
     Active Substance: CYCLOBENZAPRINE
  36. LANTUS [Concomitant]
     Active Substance: INSULIN GLARGINE
  37. GABAPENTIN. [Concomitant]
     Active Substance: GABAPENTIN
  38. MIRTAZAPINE. [Concomitant]
     Active Substance: MIRTAZAPINE
  39. METOLAZONE. [Concomitant]
     Active Substance: METOLAZONE
  40. WARFARIN [Concomitant]
     Active Substance: WARFARIN
  41. PNEUMOVAX 23 [Concomitant]
     Active Substance: PNEUMOCOCCAL VACCINE, POLYVALENT 23

REACTIONS (5)
  - Chronic kidney disease [Unknown]
  - Renal failure [Unknown]
  - Renal tubular necrosis [Unknown]
  - Renal injury [Unknown]
  - Acute kidney injury [Unknown]

NARRATIVE: CASE EVENT DATE: 20160908
